FAERS Safety Report 4457549-5 (Version None)
Quarter: 2004Q3

REPORT INFORMATION
  Report Type: 
  Country: None (occurrence: None)
  Receive Date: 20040902
  Receipt Date: 20040416
  Transmission Date: 20050211
  Serious: Yes (Hospitalization)
  Sender: FDA-Public Use
  Company Number: 1588

PATIENT
  Age: 95 Year
  Sex: Female
  Weight: 45.3597 kg

DRUGS (9)
  1. AVINZA [Suspect]
     Indication: PAIN
     Dosage: 60 MG QD PO
     Route: 048
     Dates: start: 20040414, end: 20040416
  2. AVINZA [Suspect]
     Indication: PAIN
     Dosage: 30 MG QD PO
     Route: 048
     Dates: start: 20040401
  3. ACETAMINOPHEN [Concomitant]
  4. ACETYLSALICYLIC ACID [Concomitant]
  5. CALCIUM CARBONATE [Concomitant]
  6. FIBER SUPPLEMENT [Concomitant]
  7. HYDROCODONE /ACETAMINOPHEN [Concomitant]
  8. MAGNESIUM HYDROXIDE TAB [Concomitant]
  9. SENNA [Concomitant]

REACTIONS (2)
  - CONSTIPATION [None]
  - HYPOVENTILATION [None]
